FAERS Safety Report 25046896 (Version 3)
Quarter: 2025Q4

REPORT INFORMATION
  Report Type: Report from Study
  Country: US (occurrence: None)
  Receive Date: 20250306
  Receipt Date: 20251017
  Transmission Date: 20260117
  Serious: Yes (Other)
  Sender: UCB
  Company Number: US-UCBSA-2025005270

PATIENT
  Age: 13 Year
  Weight: 27 kg

DRUGS (2)
  1. FENFLURAMINE [Suspect]
     Active Substance: FENFLURAMINE
     Indication: Epilepsy
     Dosage: 4 MILLILITER, 2X/DAY (BID)
  2. FENFLURAMINE [Suspect]
     Active Substance: FENFLURAMINE
     Indication: Seizure

REACTIONS (2)
  - Gastroenteritis norovirus [Recovered/Resolved]
  - Tricuspid valve incompetence [Not Recovered/Not Resolved]
